FAERS Safety Report 7288952-6 (Version None)
Quarter: 2011Q1

REPORT INFORMATION
  Report Type: 
  Country: None (occurrence: None)
  Receive Date: 20110211
  Receipt Date: 20110208
  Transmission Date: 20110831
  Serious: Yes (Death)
  Sender: FDA-Public Use
  Company Number: IT-PFIZER INC-2011028725

PATIENT
  Age: 48 Year
  Sex: Male

DRUGS (2)
  1. BENEFIX [Suspect]
     Dosage: 2000 IU, AS NEEDED
     Route: 042
     Dates: end: 20110202
  2. BENEFIX [Suspect]
     Indication: FACTOR IX DEFICIENCY
     Dosage: 4000 IU, 1X/DAY
     Route: 042
     Dates: start: 20101228

REACTIONS (2)
  - RENAL FAILURE [None]
  - RESPIRATORY FAILURE [None]
